FAERS Safety Report 6492585-9 (Version None)
Quarter: 2009Q4

REPORT INFORMATION
  Report Type: 
  Country: None (occurrence: None)
  Receive Date: 20091214
  Receipt Date: 20091203
  Transmission Date: 20100525
  Serious: Yes (Other)
  Sender: FDA-Public Use
  Company Number: PHEH2009US14089

PATIENT
  Sex: Male

DRUGS (1)
  1. EXJADE [Suspect]
     Dosage: 1625 MG, QD
     Route: 048

REACTIONS (3)
  - GENERAL PHYSICAL HEALTH DETERIORATION [None]
  - HEPATIC CIRRHOSIS [None]
  - SWELLING [None]
